FAERS Safety Report 23268578 (Version 1)
Quarter: 2023Q4

REPORT INFORMATION
  Report Type: Spontaneous
  Country: KR (occurrence: KR)
  Receive Date: 20231206
  Receipt Date: 20231206
  Transmission Date: 20240109
  Serious: No
  Sender: FDA-Public Use
  Company Number: KR-PFIZER INC-PV202300196259

PATIENT
  Sex: Male

DRUGS (1)
  1. PAXLOVID [Suspect]
     Active Substance: NIRMATRELVIR\RITONAVIR
     Indication: COVID-19 treatment
     Dosage: [NIRMATRELVIR 300 MG], 1X/DAY, IN THE MORNING; [RITONAVIR 100 MG], 1X/DAY, IN THE EVENING
     Route: 048
     Dates: start: 20231129, end: 20231130

REACTIONS (1)
  - Incorrect dose administered [Unknown]

NARRATIVE: CASE EVENT DATE: 20231129
